FAERS Safety Report 8907504 (Version 11)
Quarter: 2014Q2

REPORT INFORMATION
  Report Type: Spontaneous
  Country: US (occurrence: US)
  Receive Date: 20121114
  Receipt Date: 20140505
  Transmission Date: 20141212
  Serious: Yes (Hospitalization, Other)
  Sender: FDA-Public Use
  Company Number: US-BIOGENIDEC-2012BI052646

PATIENT
  Age: 47 Year
  Sex: Female
  Weight: 59 kg

DRUGS (30)
  1. TYSABRI [Suspect]
     Indication: MULTIPLE SCLEROSIS
     Route: 042
     Dates: start: 20110804, end: 20121004
  2. TYSABRI [Suspect]
     Indication: MULTIPLE SCLEROSIS
     Dates: start: 20130627, end: 20130710
  3. AMLODIPINE [Concomitant]
  4. B12 [Concomitant]
  5. BONIVA [Concomitant]
  6. CALCIUM [Concomitant]
  7. VITAMIN D [Concomitant]
  8. DETROL LA [Concomitant]
     Route: 048
  9. FUROSEMIDE [Concomitant]
  10. HYDROCODONE [Concomitant]
  11. ACETAMINOPHEN [Concomitant]
  12. LEVOTHYROXINE [Concomitant]
  13. LIPITOR [Concomitant]
  14. LISINOPRIL [Concomitant]
  15. LOVAZA [Concomitant]
  16. NEXIUM [Concomitant]
  17. TRAVATAN [Concomitant]
     Route: 047
  18. TRICOR [Concomitant]
  19. WELLBUTRIN XL [Concomitant]
  20. ZETIA [Concomitant]
  21. BACLOFEN [Concomitant]
     Route: 048
  22. GABAPENTIN [Concomitant]
     Route: 048
  23. NITROGLYCERIN [Concomitant]
  24. PROAIR [Concomitant]
     Route: 055
  25. KLOR-CON [Concomitant]
  26. ATIVAN [Concomitant]
  27. BASE, PCCA DMAE COMPLEX [Concomitant]
  28. FLEXERIL [Concomitant]
     Route: 048
  29. PEPCID [Concomitant]
  30. VITAMIN D2 [Concomitant]

REACTIONS (8)
  - Progressive multifocal leukoencephalopathy [Unknown]
  - Cerebral haemorrhage [Recovered/Resolved]
  - Immune reconstitution inflammatory syndrome [Unknown]
  - Urosepsis [Unknown]
  - Hypotension [Unknown]
  - Confusional state [Unknown]
  - Hallucination [Unknown]
  - Convulsion [Not Recovered/Not Resolved]
